FAERS Safety Report 8168067-5 (Version None)
Quarter: 2012Q1

REPORT INFORMATION
  Report Type: 
  Country: None (occurrence: None)
  Receive Date: 20120227
  Receipt Date: 20120216
  Transmission Date: 20120608
  Serious: Yes (Hospitalization, Other)
  Sender: FDA-Public Use
  Company Number: PHHY2011DE32543

PATIENT
  Sex: Male
  Weight: 120 kg

DRUGS (5)
  1. SANDOSTATIN LAR [Suspect]
     Dosage: 20 MG
     Route: 030
     Dates: start: 20111028
  2. SANDOSTATIN LAR [Suspect]
     Dosage: 20 MG, UNK
     Route: 030
     Dates: start: 20110317
  3. SANDOSTATIN LAR [Suspect]
     Dosage: 20 MG
     Route: 030
     Dates: start: 20110414
  4. SANDOSTATIN LAR [Suspect]
     Indication: ACROMEGALY
     Dosage: 20 MG
     Route: 030
     Dates: start: 20101001
  5. ATACAND [Concomitant]
     Indication: BLOOD PRESSURE INCREASED
     Dosage: UNK
     Route: 065

REACTIONS (12)
  - RENAL PAIN [None]
  - JAW DISORDER [None]
  - HAEMORRHOIDS [None]
  - ALOPECIA [None]
  - NEPHROLITHIASIS [None]
  - DYSGEUSIA [None]
  - TREMOR [None]
  - HYPERHIDROSIS [None]
  - SHOCK HYPOGLYCAEMIC [None]
  - DIARRHOEA [None]
  - NAUSEA [None]
  - FAECES DISCOLOURED [None]
